FAERS Safety Report 5905901-0 (Version None)
Quarter: 2008Q4

REPORT INFORMATION
  Report Type: 
  Country: None (occurrence: None)
  Receive Date: 20081002
  Receipt Date: 20080925
  Transmission Date: 20090506
  Serious: Yes (Other)
  Sender: FDA-Public Use
  Company Number: US-ABBOTT-08P-163-0469847-00

PATIENT
  Sex: Female
  Weight: 55.388 kg

DRUGS (3)
  1. DEPAKOTE [Suspect]
     Indication: CONVULSION
     Route: 048
     Dates: start: 19870101, end: 20080723
  2. DEPAKOTE [Suspect]
     Route: 048
     Dates: start: 20080723, end: 20080730
  3. DEPAKOTE [Suspect]
     Route: 048
     Dates: start: 20080730

REACTIONS (9)
  - ASTHENIA [None]
  - BALANCE DISORDER [None]
  - CATARACT [None]
  - DEAFNESS BILATERAL [None]
  - DEHYDRATION [None]
  - GALLBLADDER NON-FUNCTIONING [None]
  - NERVOUSNESS [None]
  - PANIC ATTACK [None]
  - TREMOR [None]
